FAERS Safety Report 16196797 (Version 1)
Quarter: 2019Q2

REPORT INFORMATION
  Report Type: Spontaneous
  Country: NL (occurrence: NL)
  Receive Date: 20190415
  Receipt Date: 20190415
  Transmission Date: 20190711
  Serious: Yes (Other)
  Sender: FDA-Public Use
  Company Number: NL-009507513-1904NLD004659

PATIENT
  Sex: Female

DRUGS (12)
  1. SEROQUEL [Suspect]
     Active Substance: QUETIAPINE FUMARATE
     Route: 048
  2. SEROXAT [Suspect]
     Active Substance: PAROXETINE HYDROCHLORIDE
  3. NORTRILEN [Suspect]
     Active Substance: NORTRIPTYLINE
  4. REMERON [Suspect]
     Active Substance: MIRTAZAPINE
  5. CYTOMEL [Suspect]
     Active Substance: LIOTHYRONINE SODIUM
  6. CIPRAMIL [CITALOPRAM HYDROBROMIDE] [Suspect]
     Active Substance: CITALOPRAM HYDROBROMIDE
  7. ZYBAN [Suspect]
     Active Substance: BUPROPION HYDROCHLORIDE
  8. ZOLOFT [Suspect]
     Active Substance: SERTRALINE HYDROCHLORIDE
  9. EFFEXOR [Suspect]
     Active Substance: VENLAFAXINE HYDROCHLORIDE
  10. PARNATE [Suspect]
     Active Substance: TRANYLCYPROMINE SULFATE
  11. CYMBALTA [Suspect]
     Active Substance: DULOXETINE HYDROCHLORIDE
  12. SAROTEX [Suspect]
     Active Substance: AMITRIPTYLINE HYDROCHLORIDE

REACTIONS (8)
  - Irritability [Unknown]
  - Insomnia [Unknown]
  - Weight increased [Unknown]
  - Suicidal ideation [Unknown]
  - Homicidal ideation [Unknown]
  - Nausea [Unknown]
  - Headache [Unknown]
  - Libido decreased [Unknown]
